FAERS Safety Report 7552147-9 (Version None)
Quarter: 2011Q2

REPORT INFORMATION
  Report Type: 
  Country: None (occurrence: None)
  Receive Date: 20110616
  Receipt Date: 20110602
  Transmission Date: 20111010
  Serious: Yes (Other)
  Sender: FDA-Public Use
  Company Number: US-BAYER-2011-000121

PATIENT
  Age: 16 Year
  Sex: Female
  Weight: 61 kg

DRUGS (4)
  1. DIFFERIN [Concomitant]
     Indication: ACNE
     Dosage: 0.1 %, UNK
     Dates: start: 20080101, end: 20090201
  2. YAZ [Suspect]
     Indication: ACNE
     Dosage: UNK
     Route: 048
     Dates: start: 20071201
  3. YAZ [Suspect]
     Indication: CONTRACEPTION
     Dosage: UNK
     Route: 048
     Dates: start: 20080101, end: 20080801
  4. YAZ [Suspect]
     Dosage: UNK
     Route: 048
     Dates: start: 20090101, end: 20090401

REACTIONS (3)
  - PAIN [None]
  - INJURY [None]
  - CHOLECYSTITIS CHRONIC [None]
